FAERS Safety Report 8554016-4 (Version None)
Quarter: 2012Q3

REPORT INFORMATION
  Report Type: 
  Country: None (occurrence: None)
  Receive Date: 20120731
  Receipt Date: 20120718
  Transmission Date: 20120928
  Serious: Yes (Death)
  Sender: FDA-Public Use
  Company Number: US-ASTRAZENECA-2012SE30820

PATIENT
  Age: 79 Year
  Sex: Female

DRUGS (1)
  1. CAPRELSA [Suspect]
     Indication: THYROID CANCER
     Route: 048

REACTIONS (6)
  - FALL [None]
  - COMA [None]
  - HEAD INJURY [None]
  - FATIGUE [None]
  - TRAUMATIC HAEMATOMA [None]
  - DIARRHOEA [None]
